FAERS Safety Report 9854838 (Version 2)
Quarter: 2014Q1

REPORT INFORMATION
  Report Type: Spontaneous
  Country: US (occurrence: US)
  Receive Date: 20140130
  Receipt Date: 20140130
  Transmission Date: 20141002
  Serious: Yes (Other)
  Sender: FDA-Public Use
  Company Number: US-ASTRAZENECA-2013SE93554

PATIENT
  Age: 60 Year
  Sex: Female
  Weight: 89.8 kg

DRUGS (7)
  1. ATACAND HCT [Suspect]
     Indication: HYPERTENSION
     Dosage: DAILY
     Route: 048
     Dates: end: 20131218
  2. CRESTOR [Suspect]
     Indication: ARTERIAL OCCLUSIVE DISEASE
     Dosage: UNKNOWN DAILY
     Route: 048
     Dates: end: 20131218
  3. LYRICA [Concomitant]
     Indication: FIBROMYALGIA
     Route: 048
  4. MELOXICAN [Concomitant]
     Indication: ARTHROPATHY
     Route: 048
  5. TRAMADOL HCL [Concomitant]
     Indication: PAIN
     Route: 048
  6. AMYTRIPTYLINE [Concomitant]
     Route: 048
  7. REQUIP [Concomitant]
     Indication: TREMOR
     Route: 048

REACTIONS (7)
  - Road traffic accident [Unknown]
  - Disturbance in attention [Unknown]
  - Blood pressure increased [Recovered/Resolved]
  - Fibromyalgia [Unknown]
  - Joint swelling [Unknown]
  - Joint swelling [Unknown]
  - Drug dose omission [Unknown]
